FAERS Safety Report 4545962-7 (Version None)
Quarter: 2005Q1

REPORT INFORMATION
  Report Type: 
  Country: None (occurrence: None)
  Receive Date: 20050103
  Receipt Date: 20041222
  Transmission Date: 20050727
  Serious: Yes (Other)
  Sender: FDA-Public Use
  Company Number: 2004048907

PATIENT
  Sex: Female

DRUGS (66)
  1. NEURONTIN [Suspect]
     Indication: BIPOLAR DISORDER
     Dosage: 200 MG (400 MG, 5 IN 1 D)
     Dates: start: 19990318, end: 20020201
  2. CEPHALEXIN [Concomitant]
  3. WARFARIN SODIUM [Concomitant]
  4. PHENYLPROPANOLAMINE HCL [Concomitant]
  5. CYPROHEPTADINE HYDROCHLORIDE [Concomitant]
  6. YOHIMBINE (YOHIMBINE) [Concomitant]
  7. CETIRIZINE HCL [Concomitant]
  8. ADAPALENE (ADAPALENE) [Concomitant]
  9. MELOXICAM (MELOXICAM) [Concomitant]
  10. ARIPIPRAZOLE (ARIPIPRAZOLE) [Concomitant]
  11. KETOROLAC TROMETHAMINE [Concomitant]
  12. ISCOM (DICHLORALPHENAZONE, ISOMETHEPTENE MUCATE, PARACETAMOL) [Concomitant]
  13. CLONAZEPAM [Concomitant]
  14. OLANZAPINE [Concomitant]
  15. ZOLPIDEM TARTRATE [Concomitant]
  16. FLUOXETINE HYDROCHLORIDE [Concomitant]
  17. RALOXIFENE HCL [Concomitant]
  18. LITHIUM CARBONATE [Concomitant]
  19. TRAMADOL HCL [Concomitant]
  20. ATENOLOL [Concomitant]
  21. TRAZODONE 9TRAZODONE0 [Concomitant]
  22. PROPACET 100 [Concomitant]
  23. ESTRATEST H (ESTROGENS ESTERIFIED, METHYLTESTOSTERONE0 [Concomitant]
  24. ESTRADIOL [Concomitant]
  25. VENLAFAXINE HCL [Concomitant]
  26. NEFAZODONE HCL [Concomitant]
  27. ZOLMITRIPTAN (ZOLMITRIPTAN) [Concomitant]
  28. SODIUM FLUORIDE (SODIUM FLUORIDE) [Concomitant]
  29. AMOXICILLIN [Concomitant]
  30. MEPERIDINE W/PROMETHAZINE (PETHIDINE, PROMETHAZINE) [Concomitant]
  31. AZITHROMYCIN [Concomitant]
  32. AQUATAB C (DEXTROMETHORPHAN, GUAIFENESIN, PHENYLPROPANOLAMINE) [Concomitant]
  33. PREDNISONE (PREDNISONE) [Concomitant]
  34. PRAVASTAIN SODIUM (PRAVASTATIN SODIUM) [Concomitant]
  35. CLINDAMYCIN (CLINDAMYCIN) [Concomitant]
  36. CHLORHEXIDINE (CHLORHEXIDINE) [Concomitant]
  37. VICODIN [Concomitant]
  38. DOCUSATE SODIUM (DOCUSATE SODIUM) [Concomitant]
  39. RISPERDAL [Concomitant]
  40. MIRTAZAPINE [Concomitant]
  41. BUPROPION HYDROCHLORIDE [Concomitant]
  42. PROPANOLOL HYDROCHLORIDE (PROPRANOLOL HYDROCHLORIDE) [Concomitant]
  43. SUMATRIPTAN SUCCINATE [Concomitant]
  44. METHOCARBAMOL [Concomitant]
  45. NAPROXEN [Concomitant]
  46. ............ [Concomitant]
  47. NARINE REPETABS (LORATADINE, PSEUDOEPHEDRINE SULFATE) [Concomitant]
  48. TEMEZAPAM (TEMAZEPAM) [Concomitant]
  49. QUETIAPINE FUMARATE (QUETIAPINE FUMARATE0 [Concomitant]
  50. ROBUTISIN A-C /OLD FORM/ (CODEINE PHOSPHATE , GUAIFENESIN, PHENIRAMINE [Concomitant]
  51. FLURAZEPAM HYDROCHLORIDE (FLURAZEPAM HYDROCHLORIDE) [Concomitant]
  52. MOMETASONE FUROATE (MOMETASONE FUROATE0 [Concomitant]
  53. ADAPALENE (ADAPALENE) [Concomitant]
  54. RONATIC (CHLORPHENAMINE TANNATE, MEPYRAMINE TANNATE, PHENYLEPHRINE TAN [Concomitant]
  55. MODAFINIL [Concomitant]
  56. TIZANIDINE HCL [Concomitant]
  57. CONJUGATED ESTROGENS [Concomitant]
  58. ESTRADIOL [Concomitant]
  59. TIABABINE HYDROCHLORIDE 9TIAGABINE HYDROCHLORIDE) [Concomitant]
  60. SILDENAFIL CITRATE         (SLDENAFIL CITRATE) [Concomitant]
  61. BUTORPHANOL TARATRATE [Concomitant]
  62. TRIMETHOBENZAMIDE HYDROCHLORIDE   (TRIMETHOBENZAMIDE  HYDROCHLORIDE) [Concomitant]
  63. LITHIUM CARBONATE [Concomitant]
  64. VALPROATE SODIUM [Concomitant]
  65. BECLOMETHASONE DIPROPIONATE [Concomitant]
  66. CLAVULIN (AMOXICILLIN TRIHYDRATE, CLAVULANATE POTASSIUM) [Concomitant]

REACTIONS (18)
  - ANXIETY [None]
  - CHEST PAIN [None]
  - CONDITION AGGRAVATED [None]
  - COUGH [None]
  - DEFORMITY [None]
  - DIAPHRAGMATIC INJURY [None]
  - ECONOMIC PROBLEM [None]
  - GUN SHOT WOUND [None]
  - HEPATIC TRAUMA [None]
  - HYPERVENTILATION [None]
  - MENTAL DISORDER [None]
  - PAIN [None]
  - PERICARDIAL EFFUSION [None]
  - PERICARDIAL EXCISION [None]
  - PLEURAL EFFUSION [None]
  - PNEUMONIA [None]
  - POLYTRAUMATISM [None]
  - SUICIDE ATTEMPT [None]
